FAERS Safety Report 4394774-6 (Version None)
Quarter: 2004Q3

REPORT INFORMATION
  Report Type: 
  Country: None (occurrence: None)
  Receive Date: 20040707
  Receipt Date: 20040628
  Transmission Date: 20050211
  Serious: Yes (Hospitalization)
  Sender: FDA-Public Use
  Company Number: 2004CG01137

PATIENT
  Age: 85 Year
  Sex: Female
  Weight: 56 kg

DRUGS (6)
  1. ATACAND [Suspect]
     Dosage: 8 MG DAILY PO
     Route: 048
     Dates: end: 20040408
  2. MOTILIUM [Concomitant]
  3. ISOPTIN SR [Concomitant]
  4. PLAVIX [Concomitant]
  5. LASIX [Concomitant]
  6. TRINIPATCH [Concomitant]

REACTIONS (6)
  - ASTHENIA [None]
  - FALL [None]
  - HYPERKALAEMIA [None]
  - MYOGLOBIN BLOOD INCREASED [None]
  - TROPONIN INCREASED [None]
  - WHITE BLOOD CELL COUNT INCREASED [None]
